FAERS Safety Report 25346889 (Version 1)
Quarter: 2025Q2

REPORT INFORMATION
  Report Type: Spontaneous
  Country: US (occurrence: US)
  Receive Date: 20250522
  Receipt Date: 20250522
  Transmission Date: 20250716
  Serious: Yes (Other)
  Sender: MYLAN
  Company Number: US-MYLANLABS-2025M1042948

PATIENT
  Age: 57 Year
  Sex: Male

DRUGS (9)
  1. GEMCITABINE [Suspect]
     Active Substance: GEMCITABINE
     Indication: Pancreatic neuroendocrine tumour
  2. OXALIPLATIN [Suspect]
     Active Substance: OXALIPLATIN
     Indication: Pancreatic neuroendocrine tumour
  3. ETOPOSIDE [Suspect]
     Active Substance: ETOPOSIDE
     Indication: Pancreatic neuroendocrine tumour
  4. LAROTRECTINIB [Suspect]
     Active Substance: LAROTRECTINIB
     Indication: Pancreatic neuroendocrine tumour
  5. FLUOROURACIL [Suspect]
     Active Substance: FLUOROURACIL
     Indication: Pancreatic neuroendocrine tumour
  6. LEUCOVORIN [Suspect]
     Active Substance: LEUCOVORIN\LEUCOVORIN CALCIUM
     Indication: Pancreatic neuroendocrine tumour
  7. CARBOPLATIN [Suspect]
     Active Substance: CARBOPLATIN
     Indication: Pancreatic neuroendocrine tumour
  8. IPILIMUMAB [Suspect]
     Active Substance: IPILIMUMAB
     Indication: Pancreatic neuroendocrine tumour
  9. NIVOLUMAB [Suspect]
     Active Substance: NIVOLUMAB
     Indication: Pancreatic neuroendocrine tumour

REACTIONS (6)
  - Pulmonary embolism [Unknown]
  - Neuropathy peripheral [Unknown]
  - Fatigue [Unknown]
  - Feeling cold [Unknown]
  - Rash [Unknown]
  - Nausea [Unknown]
